FAERS Safety Report 22995125 (Version 3)
Quarter: 2024Q1

REPORT INFORMATION
  Report Type: Spontaneous
  Country: ZA (occurrence: ZA)
  Receive Date: 20230927
  Receipt Date: 20240304
  Transmission Date: 20240410
  Serious: Yes (Hospitalization, Other)
  Sender: FDA-Public Use
  Company Number: ZA-SA-2023SA145677

PATIENT
  Age: 33 Year
  Sex: Female

DRUGS (3)
  1. MYOZYME [Suspect]
     Active Substance: ALGLUCOSIDASE ALFA
     Indication: Glycogen storage disease type II
     Dosage: 50 MG, QOW
     Route: 040
  2. RITUXIMAB [Concomitant]
     Active Substance: RITUXIMAB
     Dosage: UNK
  3. HYDROCORTISONE [Concomitant]
     Active Substance: HYDROCORTISONE

REACTIONS (6)
  - Illness [Unknown]
  - Post procedural sepsis [Unknown]
  - Autoimmune disorder [Unknown]
  - Antinuclear antibody positive [Unknown]
  - Arthritis [Unknown]
  - Complement factor C3 decreased [Unknown]
